FAERS Safety Report 9698778 (Version 1)
Quarter: 2013Q4

REPORT INFORMATION
  Report Type: Spontaneous
  Country: US (occurrence: US)
  Receive Date: 20131120
  Receipt Date: 20131120
  Transmission Date: 20140711
  Serious: Yes (Other)
  Sender: FDA-Public Use
  Company Number: ALCN2013US005754

PATIENT
  Sex: Male

DRUGS (2)
  1. BSS [Suspect]
     Dosage: 1 DF, UNK
     Dates: start: 20131105, end: 20131105
  2. LIDOCAINE [Concomitant]
     Dosage: 1 %, UNK
     Dates: start: 20131105, end: 20131105

REACTIONS (1)
  - Endophthalmitis [Recovering/Resolving]
